FAERS Safety Report 4678320-5 (Version None)
Quarter: 2005Q2

REPORT INFORMATION
  Report Type: 
  Country: None (occurrence: None)
  Receive Date: 20050601
  Receipt Date: 20050518
  Transmission Date: 20051028
  Serious: Yes (Life-Threatening)
  Sender: FDA-Public Use
  Company Number: US-KINGPHARMUSA00001-K200500652

PATIENT
  Age: 74 Year
  Sex: Female

DRUGS (10)
  1. ALTACE [Suspect]
     Indication: CARDIAC FAILURE CONGESTIVE
     Dosage: 5 MG, QD
     Route: 048
  2. CLEXANE [Suspect]
     Indication: CEREBROVASCULAR DISORDER
     Dosage: 140 MG, QD
     Route: 058
     Dates: start: 20040315, end: 20040323
  3. WARFARIN [Suspect]
     Indication: CEREBROVASCULAR DISORDER
     Dosage: 3 MG, QD
     Route: 048
     Dates: end: 20040301
  4. SPIRONOLACTONE [Suspect]
     Indication: CARDIAC FAILURE CONGESTIVE
     Dosage: 25 MG, QD
     Route: 048
     Dates: end: 20040324
  5. MOBIC [Suspect]
     Dosage: 15 MG, QD
     Route: 048
     Dates: end: 20040315
  6. ASPIRIN [Suspect]
     Indication: MYOCARDIAL ISCHAEMIA
     Dosage: 100 MG, QD
     Route: 048
  7. QUINATE [Concomitant]
     Indication: PAIN IN EXTREMITY
     Dosage: 100 MG, QD
     Route: 048
  8. IMDUR [Concomitant]
     Indication: MYOCARDIAL ISCHAEMIA
     Dosage: 60 MG, QD
     Route: 048
  9. NICORANDIL [Concomitant]
     Indication: MYOCARDIAL ISCHAEMIA
     Dosage: 5 MG, QD
     Route: 048
  10. AMOXICILLIN TRIHYDRATE [Concomitant]
     Dosage: 2 G, UNK
     Dates: start: 20040315, end: 20040324

REACTIONS (6)
  - BLOOD CREATININE INCREASED [None]
  - CONTUSION [None]
  - CREATININE RENAL CLEARANCE DECREASED [None]
  - HAEMATOMA [None]
  - HYPERKALAEMIA [None]
  - RENAL IMPAIRMENT [None]
